FAERS Safety Report 4270810-2 (Version None)
Quarter: 2004Q1

REPORT INFORMATION
  Report Type: 
  Country: None (occurrence: None)
  Receive Date: 20040113
  Receipt Date: 20010201
  Transmission Date: 20041129
  Serious: No
  Sender: FDA-Public Use
  Company Number: 7010

PATIENT
  Sex: Male

DRUGS (3)
  1. METHOTREXATE [Suspect]
     Indication: RHEUMATOID ARTHRITIS
     Dates: start: 19990701
  2. FOLIC ACID [Concomitant]
  3. RANITIDINE [Concomitant]

REACTIONS (1)
  - SPINAL CORD ISCHAEMIA [None]
